FAERS Safety Report 9999943 (Version 2)
Quarter: 2014Q1

REPORT INFORMATION
  Report Type: Spontaneous
  Country: US (occurrence: US)
  Receive Date: 20140312
  Receipt Date: 20140312
  Transmission Date: 20141002
  Serious: No
  Sender: FDA-Public Use
  Company Number: US-GILEAD-2012-0058306

PATIENT
  Age: 46 Year
  Sex: Female

DRUGS (3)
  1. LETAIRIS [Suspect]
     Indication: PULMONARY HYPERTENSION
     Dosage: 5 MG, UNK
     Route: 048
     Dates: start: 20120503, end: 20120702
  2. LETAIRIS [Suspect]
     Indication: ATRIOVENTRICULAR SEPTAL DEFECT
  3. LETAIRIS [Suspect]
     Indication: EISENMENGER^S SYNDROME

REACTIONS (2)
  - Hypersomnia [Unknown]
  - Oedema [Unknown]
